FAERS Safety Report 5955217-1 (Version None)
Quarter: 2008Q4

REPORT INFORMATION
  Report Type: 
  Country: None (occurrence: None)
  Receive Date: 20081031
  Receipt Date: 20080707
  Transmission Date: 20090506
  Serious: No
  Sender: FDA-Public Use
  Company Number: 2008PV036056

PATIENT
  Age: 52 Year
  Sex: Female

DRUGS (5)
  1. SYMLIN [Suspect]
     Indication: DRUG USE FOR UNKNOWN INDICATION
     Dosage: 15 MCG; TID, SC, 60 MCG; TID; SC, 45 MCG; TID; SC, 15 MCG; TID; SC
     Route: 058
     Dates: start: 20080401, end: 20080401
  2. SYMLIN [Suspect]
     Indication: DRUG USE FOR UNKNOWN INDICATION
     Dosage: 15 MCG; TID, SC, 60 MCG; TID; SC, 45 MCG; TID; SC, 15 MCG; TID; SC
     Route: 058
     Dates: start: 20080401, end: 20080401
  3. SYMLIN [Suspect]
     Indication: DRUG USE FOR UNKNOWN INDICATION
     Dosage: 15 MCG; TID, SC, 60 MCG; TID; SC, 45 MCG; TID; SC, 15 MCG; TID; SC
     Route: 058
     Dates: start: 20080401, end: 20080401
  4. SYMLIN [Suspect]
     Indication: DRUG USE FOR UNKNOWN INDICATION
     Dosage: 15 MCG; TID, SC, 60 MCG; TID; SC, 45 MCG; TID; SC, 15 MCG; TID; SC
     Route: 058
     Dates: start: 20080601
  5. INSULIN [Concomitant]

REACTIONS (2)
  - EAR CONGESTION [None]
  - HYPOACUSIS [None]
